FAERS Safety Report 22380298 (Version 10)
Quarter: 2024Q3

REPORT INFORMATION
  Report Type: Spontaneous
  Country: CA (occurrence: CA)
  Receive Date: 20230529
  Receipt Date: 20240927
  Transmission Date: 20241016
  Serious: Yes (Hospitalization, Other)
  Sender: PFIZER
  Company Number: CA-PFIZER INC-202300202412

PATIENT
  Age: 59 Year
  Sex: Female
  Weight: 78.998 kg

DRUGS (25)
  1. RUXIENCE [Suspect]
     Active Substance: RITUXIMAB-PVVR
     Indication: Rheumatoid arthritis
     Dosage: 1 G, DAY 1 AND DAY 15
     Route: 042
     Dates: start: 20230524, end: 20230607
  2. RUXIENCE [Suspect]
     Active Substance: RITUXIMAB-PVVR
     Dosage: 1 G, DAY 1 AND DAY 15
     Route: 042
     Dates: start: 20230607
  3. RUXIENCE [Suspect]
     Active Substance: RITUXIMAB-PVVR
     Dosage: 1 G, EVERY 6 MONTH, DAY 1 AND DAY 15 (1000 MG)
     Route: 042
     Dates: start: 20231207
  4. RUXIENCE [Suspect]
     Active Substance: RITUXIMAB-PVVR
     Dosage: 1 G, EVERY 6 MONTH, DAY 1 AND DAY 15 (2 WEEKS) (1000 MG)
     Route: 042
     Dates: start: 20231220
  5. ACETAMINOPHEN [Concomitant]
     Active Substance: ACETAMINOPHEN
     Dosage: 1000 MG, 4X/DAY
  6. ZOLEDRONIC ACID [Concomitant]
     Active Substance: ZOLEDRONIC ACID
     Dosage: 5 MG ONCE A YEAR
  7. VERAPAMIL HYDROCHLORIDE [Concomitant]
     Active Substance: VERAPAMIL HYDROCHLORIDE
     Dosage: 80 MG, 3X/DAY
  8. FUROSEMIDE [Concomitant]
     Active Substance: FUROSEMIDE
     Dosage: 20 MG, (PRO FUROSEMIDE ID 20 MG)
     Route: 023
  9. OXYQUINOLINE [Concomitant]
     Active Substance: OXYQUINOLINE
     Dosage: 300 MG
     Route: 023
  10. JAMP ATENOLOL [Concomitant]
     Dosage: 50 MG, 4X/DAY
  11. JAMP VALACYCLOVIR [Concomitant]
     Dosage: 2000 MG, 2X/DAY (IF NEEDED)
  12. LORAZEPAM [Concomitant]
     Active Substance: LORAZEPAM
     Dosage: 1 MG PRO LORAZEPAM ID
     Route: 023
  13. M CETIRIZINE [Concomitant]
     Dosage: 20 MG, AS NEEDED
  14. METHOTREXATE [Concomitant]
     Active Substance: METHOTREXATE
     Dosage: 15 MG, WEEKLY(UNE FOIS/SEM )
  15. MINT LEUCOVORIN [Concomitant]
     Dosage: 5 MG, WEEKLY(UNE FOIS/SEM )
  16. OXYCODONE [Concomitant]
     Active Substance: OXYCODONE
     Dosage: 10 MG, 2X/DAY
  17. PANTOPRAZOLE [Concomitant]
     Active Substance: PANTOPRAZOLE
     Dosage: 40 MG, 2X/DAY
  18. PENTOXIFYLLINE [Concomitant]
     Active Substance: PENTOXIFYLLINE
     Dosage: 400 MG, 3X/DAY (SR)
  19. PREDNISONE [Concomitant]
     Active Substance: PREDNISONE
     Dosage: 5 MG
     Route: 023
  20. PROCAL [SODIUM FLUORIDE] [Concomitant]
     Dosage: 500 MG, 2X/DAY
  21. OLOPATADINE HYDROCHLORIDE [Concomitant]
     Active Substance: OLOPATADINE HYDROCHLORIDE
     Dosage: 0.2 % GTTE OPHT ID
     Route: 023
  22. OXYCODONE HYDROCHLORIDE [Concomitant]
     Active Substance: OXYCODONE HYDROCHLORIDE
     Dosage: 5 MG, 4X/DAY
  23. CLOBETASOL PROPIONATE CREAM [Concomitant]
     Active Substance: CLOBETASOL PROPIONATE
     Dosage: UNK (0,05)
  24. INDOMETHACIN [Concomitant]
     Active Substance: INDOMETHACIN
     Dosage: 25 MG, 2X/DAY
  25. CHOLECALCIFEROL [Concomitant]
     Active Substance: CHOLECALCIFEROL
     Dosage: 10000 IU, WEEKLY(FOIS/SEM )

REACTIONS (28)
  - Diverticulitis [Unknown]
  - Pyrexia [Unknown]
  - Pericarditis [Unknown]
  - Vein rupture [Recovered/Resolved]
  - Neutropenia [Unknown]
  - Palpitations [Recovered/Resolved]
  - Chromaturia [Recovered/Resolved]
  - Infusion site extravasation [Recovered/Resolved]
  - Poor venous access [Recovered/Resolved]
  - Chest discomfort [Recovered/Resolved]
  - Erythema [Unknown]
  - Oral disorder [Not Recovered/Not Resolved]
  - Oral discomfort [Not Recovered/Not Resolved]
  - Mouth ulceration [Not Recovered/Not Resolved]
  - Palpitations [Recovered/Resolved]
  - Discomfort [Recovered/Resolved]
  - Osteoporosis [Not Recovered/Not Resolved]
  - Dizziness [Recovered/Resolved]
  - Insomnia [Recovered/Resolved]
  - Hot flush [Recovered/Resolved]
  - Headache [Unknown]
  - Oral fungal infection [Not Recovered/Not Resolved]
  - Condition aggravated [Not Recovered/Not Resolved]
  - Abdominal pain [Unknown]
  - Fatigue [Unknown]
  - Nausea [Unknown]
  - Off label use [Unknown]
  - Off label use [Unknown]

NARRATIVE: CASE EVENT DATE: 20230101
